FAERS Safety Report 12411880 (Version 2)
Quarter: 2016Q2

REPORT INFORMATION
  Report Type: Spontaneous
  Country: US (occurrence: US)
  Receive Date: 20160527
  Receipt Date: 20160617
  Transmission Date: 20160815
  Serious: No
  Sender: FDA-Public Use
  Company Number: US-JNJFOC-20160514497

PATIENT
  Age: 73 Year
  Sex: Male
  Weight: 104.33 kg

DRUGS (2)
  1. DURAGESIC [Suspect]
     Active Substance: FENTANYL
     Indication: BACK INJURY
     Route: 062
     Dates: start: 2006, end: 201605
  2. DURAGESIC [Suspect]
     Active Substance: FENTANYL
     Indication: BACK INJURY
     Route: 062
     Dates: start: 20160503

REACTIONS (16)
  - Wrong technique in product usage process [Unknown]
  - Sciatica [Unknown]
  - Product adhesion issue [Unknown]
  - Device failure [Unknown]
  - Back pain [Not Recovered/Not Resolved]
  - Product quality issue [Unknown]
  - Dizziness [Recovered/Resolved]
  - Underdose [Unknown]
  - Hyperhidrosis [Unknown]
  - Incorrect dose administered [Unknown]
  - Product quality issue [Unknown]
  - Wrong technique in product usage process [Unknown]
  - Pain [Recovered/Resolved]
  - Product quality issue [Unknown]
  - Feeling abnormal [Unknown]
  - Cardiac disorder [Recovered/Resolved]

NARRATIVE: CASE EVENT DATE: 201604
